FAERS Safety Report 9277001 (Version 1)
Quarter: 2013Q2

REPORT INFORMATION
  Report Type: Report from Study
  Country: DE (occurrence: DE)
  Receive Date: 20130507
  Receipt Date: 20130507
  Transmission Date: 20140414
  Serious: Yes (Hospitalization)
  Sender: FDA-Public Use
  Company Number: PHHY2013DE044477

PATIENT
  Age: 79 Year
  Sex: Female
  Weight: 64.4 kg

DRUGS (27)
  1. DOXEPIN HYDROCHLORIDE [Suspect]
  2. VINCRISTINE [Suspect]
     Indication: B-CELL LYMPHOMA
  3. PREDNISONE [Suspect]
     Indication: B-CELL LYMPHOMA
  4. TORASEMIDE [Suspect]
     Indication: HYPERTONIA
     Dates: start: 20121017
  5. GRANISETRON [Suspect]
     Indication: PREMEDICATION
     Dates: start: 20121219
  6. PREDNISOLONE [Suspect]
     Indication: DYSPNOEA
     Dates: start: 20121219, end: 20121219
  7. PREDNISOLONE [Suspect]
     Indication: FEELING HOT
     Dates: start: 20130110
  8. PREDNISOLONE [Suspect]
     Indication: PROPHYLAXIS
  9. DIMETINDENE MALEATE [Suspect]
     Indication: DYSPNOEA
     Dates: start: 20121219, end: 20121219
  10. DIMETINDENE MALEATE [Suspect]
     Indication: FEELING HOT
  11. MESNA [Suspect]
     Indication: PREMEDICATION
     Dates: start: 20121219
  12. SODIUM CHLORIDE [Suspect]
     Indication: FEELING HOT
     Dates: start: 20121219, end: 20121219
  13. SODIUM CHLORIDE [Suspect]
     Indication: DYSPNOEA
  14. METOCLOPRAMIDE HYDROCHLORIDE [Suspect]
     Indication: PREMEDICATION
     Dates: start: 20121219
  15. DEXAMETHASONE [Suspect]
     Indication: PREMEDICATION
     Dates: start: 20121219
  16. PARACETAMOL [Suspect]
     Indication: PREMEDICATION
     Dates: start: 20121219
  17. ALLOPURINOL [Suspect]
     Indication: PREMEDICATION
     Dates: start: 20121220
  18. FLUCONAZOLE [Suspect]
     Indication: PREMEDICATION
     Dates: start: 20121220
  19. CIPROFLOXACIN [Suspect]
     Indication: NEUTROPENIA
     Dates: start: 20130102, end: 20130112
  20. CIPROFLOXACIN [Suspect]
  21. SPIRONOLACTONE [Suspect]
     Dates: start: 20130117
  22. POTASSIUM BICARBONATE W/POTASSIUM CITRATE [Suspect]
     Indication: HYPOKALAEMIA
     Dates: start: 20130122
  23. RITUXIMAB [Suspect]
     Dates: start: 20121219
  24. RITUXIMAB [Suspect]
     Dosage: 630 MG,1 IN 22 D
     Route: 042
     Dates: start: 20130221
  25. RANITIDINE [Suspect]
     Indication: PREMEDICATION
     Dates: start: 20121219
  26. CYCLOPHOSPHAMIDE [Suspect]
     Indication: B-CELL LYMPHOMA
  27. LACTULOSE [Concomitant]

REACTIONS (1)
  - Constipation [Recovered/Resolved]
